FAERS Safety Report 12280803 (Version 1)
Quarter: 2016Q2

REPORT INFORMATION
  Report Type: Spontaneous
  Country: US (occurrence: US)
  Receive Date: 20160419
  Receipt Date: 20160419
  Transmission Date: 20160815
  Serious: No
  Sender: FDA-Public Use
  Company Number: US-TEVA-596594USA

PATIENT
  Age: 27 Year
  Sex: Male
  Weight: 89.89 kg

DRUGS (1)
  1. ACYCLOVIR. [Suspect]
     Active Substance: ACYCLOVIR
     Indication: HERPES SIMPLEX
     Dosage: 500 MILLIGRAM DAILY;
     Route: 065
     Dates: start: 2013

REACTIONS (6)
  - Alopecia [Unknown]
  - Impatience [Unknown]
  - Agitation [Unknown]
  - Depression [Unknown]
  - Dry skin [Unknown]
  - Anger [Unknown]
